FAERS Safety Report 5881630-7 (Version None)
Quarter: 2008Q3

REPORT INFORMATION
  Report Type: 
  Country: None (occurrence: None)
  Receive Date: 20080912
  Receipt Date: 20080717
  Transmission Date: 20090109
  Serious: Yes (Hospitalization)
  Sender: FDA-Public Use
  Company Number: US-ABBOTT-08P-163-0461331-00

PATIENT
  Sex: Female
  Weight: 59.928 kg

DRUGS (13)
  1. HUMIRA [Suspect]
     Indication: CROHN'S DISEASE
     Dosage: FOR 4 INJECTIONS
     Route: 058
     Dates: start: 20080515
  2. HUMIRA [Suspect]
     Dosage: FOR 2 INJECTIONS
     Route: 058
     Dates: start: 20080529
  3. HUMIRA [Suspect]
     Dosage: ONE EVERY OTHER THURSDAY
     Route: 058
  4. LEKOVIT CA [Concomitant]
     Indication: DRUG USE FOR UNKNOWN INDICATION
  5. VIGRAN [Concomitant]
     Indication: DRUG USE FOR UNKNOWN INDICATION
     Dates: start: 20080501
  6. MESALAMINE [Concomitant]
     Indication: INFLAMMATION
     Dosage: 2 TABS TID
     Route: 048
     Dates: start: 19950101
  7. CELECOXIB [Concomitant]
     Indication: ANTIINFLAMMATORY THERAPY
     Route: 048
  8. PROCET [Concomitant]
     Indication: PAIN
     Dosage: 10/650 TABS QID, PRN
     Route: 048
  9. ALPRAZOLAM [Concomitant]
     Indication: ANXIETY DISORDER
     Route: 048
  10. ALPRAZOLAM [Concomitant]
     Indication: INSOMNIA
  11. AMITRIPTYLINE HCL [Concomitant]
     Indication: DRUG USE FOR UNKNOWN INDICATION
     Dosage: AT HS
     Route: 048
  12. OMEPRAZOLE SODIUM [Concomitant]
     Indication: DYSPEPSIA
     Route: 048
  13. CYCLOBENZAPRINE HCL [Concomitant]
     Indication: DRUG USE FOR UNKNOWN INDICATION
     Route: 048

REACTIONS (10)
  - ACCIDENTAL EXPOSURE [None]
  - BACK PAIN [None]
  - BRONCHITIS [None]
  - DRUG INEFFECTIVE [None]
  - MOBILITY DECREASED [None]
  - NODULE ON EXTREMITY [None]
  - PAIN [None]
  - PAIN IN EXTREMITY [None]
  - PNEUMONIA [None]
  - PYREXIA [None]
